FAERS Safety Report 6594696-6 (Version None)
Quarter: 2010Q1

REPORT INFORMATION
  Report Type: 
  Country: None (occurrence: None)
  Receive Date: 20100222
  Receipt Date: 20100218
  Transmission Date: 20100710
  Serious: Yes (Other)
  Sender: FDA-Public Use
  Company Number: CHPA2010US03402

PATIENT
  Sex: Male

DRUGS (2)
  1. BENEFIBER SUGAR FREE (NCH) [Suspect]
     Dosage: 2 DF, AT ONCE
     Route: 048
     Dates: start: 20100203
  2. HYZAAR [Concomitant]
     Indication: HYPERTENSION
     Route: 048

REACTIONS (4)
  - BLOOD PRESSURE INCREASED [None]
  - CONDITION AGGRAVATED [None]
  - DEAFNESS [None]
  - HEADACHE [None]
